FAERS Safety Report 4556896-6 (Version None)
Quarter: 2005Q1

REPORT INFORMATION
  Report Type: 
  Country: None (occurrence: None)
  Receive Date: 20050120
  Receipt Date: 20041213
  Transmission Date: 20050727
  Serious: Yes (Life-Threatening, Hospitalization)
  Sender: FDA-Public Use
  Company Number: US-MERCK-0412USA01611

PATIENT
  Age: 81 Year
  Sex: Male

DRUGS (2)
  1. VIOXX [Suspect]
     Indication: OSTEOARTHRITIS
     Route: 048
     Dates: start: 20000601, end: 20040901
  2. LIPITOR [Concomitant]
     Route: 065
     Dates: start: 20010501

REACTIONS (9)
  - ABDOMINAL PAIN UPPER [None]
  - AMNESIA [None]
  - ANAEMIA [None]
  - ARTERIAL OCCLUSIVE DISEASE [None]
  - CHEST PAIN [None]
  - CORONARY ARTERY DISEASE [None]
  - DYSPNOEA [None]
  - HERNIA [None]
  - RENAL FAILURE [None]
